FAERS Safety Report 7629625-7 (Version None)
Quarter: 2011Q3

REPORT INFORMATION
  Report Type: 
  Country: None (occurrence: None)
  Receive Date: 20110715
  Receipt Date: 20110629
  Transmission Date: 20111222
  Serious: Yes (Other)
  Sender: FDA-Public Use
  Company Number: 2011SA024063

PATIENT
  Sex: Female
  Weight: 70 kg

DRUGS (18)
  1. FUROSEMIDE [Concomitant]
  2. ASPIRIN [Concomitant]
  3. RANOLAZINE [Concomitant]
  4. BENAZEPRIL HYDROCHLORIDE [Concomitant]
  5. OMEPRAZOLE [Concomitant]
  6. ACETAMINOPHEN AND HYDROCODONE BITARTRATE [Concomitant]
  7. NITROGLYCERIN [Concomitant]
  8. ATORVASTATIN [Concomitant]
  9. FLUTICASONE [Concomitant]
  10. LANTUS [Suspect]
     Indication: TYPE 2 DIABETES MELLITUS
     Dosage: 25 UNIT(S); DAILY; SUBCUTANEOUS
     Route: 058
     Dates: start: 20060901
  11. ISOSORBIDE MONONITRATE [Concomitant]
  12. SERTRALINE HYDROCHLORIDE [Concomitant]
  13. CLOBETASOL PROPIONATE [Concomitant]
  14. TOPROL-XL [Concomitant]
  15. ALL OTHER THERAPEUTIC PRODUCTS [Concomitant]
  16. OPTICLICK [Suspect]
     Indication: TYPE 2 DIABETES MELLITUS
  17. GABAPENTIN [Concomitant]
  18. POTASSIUM CHLORIDE [Concomitant]

REACTIONS (5)
  - MACULAR DEGENERATION [None]
  - DEVICE FAILURE [None]
  - BLOOD GLUCOSE FLUCTUATION [None]
  - WRONG TECHNIQUE IN DRUG USAGE PROCESS [None]
  - CATARACT [None]
